FAERS Safety Report 8261197-9 (Version None)
Quarter: 2012Q2

REPORT INFORMATION
  Report Type: 
  Country: None (occurrence: None)
  Receive Date: 20120405
  Receipt Date: 20120330
  Transmission Date: 20120825
  Serious: Yes (Hospitalization, Other)
  Sender: FDA-Public Use
  Company Number: US-RB-037192-12

PATIENT
  Age: 11 Year
  Sex: Male

DRUGS (1)
  1. MUCINEX [Suspect]
     Indication: PRODUCT USED FOR UNKNOWN INDICATION
     Dosage: TOOK ONE 5ML DOSE
     Route: 048
     Dates: start: 20120327

REACTIONS (4)
  - ANAPHYLACTIC REACTION [None]
  - SWOLLEN TONGUE [None]
  - DYSPNOEA [None]
  - PHARYNGEAL OEDEMA [None]
